FAERS Safety Report 5897256-5 (Version None)
Quarter: 2008Q3

REPORT INFORMATION
  Report Type: 
  Country: None (occurrence: None)
  Receive Date: 20080923
  Receipt Date: 20080908
  Transmission Date: 20090109
  Serious: Yes (Hospitalization, Disabling, Other)
  Sender: FDA-Public Use
  Company Number: 1000000978

PATIENT
  Age: 69 Year
  Sex: Female

DRUGS (1)
  1. ESCITALOPRAM OXALATE [Suspect]
     Indication: AGORAPHOBIA
     Dosage: (ONCE), ORAL
     Route: 048

REACTIONS (9)
  - AMNESIA [None]
  - BALANCE DISORDER [None]
  - BRAIN INJURY [None]
  - COGNITIVE DISORDER [None]
  - DIZZINESS [None]
  - FALL [None]
  - HYPONATRAEMIA [None]
  - IMPAIRED SELF-CARE [None]
  - INCONTINENCE [None]
